FAERS Safety Report 7376195-7 (Version None)
Quarter: 2011Q1

REPORT INFORMATION
  Report Type: 
  Country: None (occurrence: None)
  Receive Date: 20110325
  Receipt Date: 20110316
  Transmission Date: 20110831
  Serious: Yes (Hospitalization)
  Sender: FDA-Public Use
  Company Number: CA-AMGEN-US385323

PATIENT
  Age: 44 Year
  Sex: Female
  Weight: 52 kg

DRUGS (13)
  1. METOCLOPRAMIDE HYDROCHLORIDE [Concomitant]
     Dosage: 20 MG, BID
     Route: 048
     Dates: start: 20081101
  2. STATEX [Concomitant]
     Dosage: 5 MG, PRN
     Route: 048
     Dates: start: 20091203
  3. ESOMEPRAZOLE MAGNESIUM [Concomitant]
     Dosage: 80 MG, BID
     Route: 048
     Dates: start: 20081122
  4. METRONIDAZOLE [Concomitant]
     Dosage: UNK UNK, PRN
     Route: 061
     Dates: start: 20090728
  5. PROCHLORPERAZINE [Concomitant]
     Dosage: 10 MG, PRN
     Route: 048
     Dates: start: 20091008
  6. DOCUSATE SODIUM [Concomitant]
     Dosage: 300 MG, TID
     Route: 048
     Dates: start: 20030501
  7. SALBUTAMOL [Concomitant]
     Dosage: UNK UNK, PRN
     Route: 050
     Dates: start: 19840101
  8. MONTELUKAST SODIUM [Concomitant]
     Dosage: 10 MG, QD
     Route: 048
     Dates: start: 20071128
  9. IRON [Concomitant]
     Dosage: 60 MG, TID
     Route: 048
     Dates: start: 20091103
  10. LORAZEPAM [Concomitant]
     Dosage: .5 MG, QD
     Route: 048
     Dates: start: 20091027
  11. CYANOCOBALAMIN [Concomitant]
     Dosage: 1000 A?G, UNK
     Route: 058
     Dates: start: 20090806
  12. BUDESONIDE/FORMOTEROL FUMARATE [Concomitant]
     Dosage: UNK UNK, PRN
     Route: 050
     Dates: start: 20070822
  13. ROMIPLOSTIM [Suspect]
     Indication: IDIOPATHIC THROMBOCYTOPENIC PURPURA
     Dosage: 10 A?G/KG, QWK
     Route: 058
     Dates: start: 20090428

REACTIONS (3)
  - BONE PAIN [None]
  - NAUSEA [None]
  - PNEUMONIA [None]
